FAERS Safety Report 6734717-0 (Version None)
Quarter: 2010Q2

REPORT INFORMATION
  Report Type: 
  Country: None (occurrence: None)
  Receive Date: 20100518
  Receipt Date: 20100518
  Transmission Date: 20101027
  Serious: Yes (Hospitalization, Other)
  Sender: FDA-Public Use
  Company Number: None

PATIENT
  Sex: Female
  Weight: 63.5036 kg

DRUGS (1)
  1. MIRENA [Suspect]
     Indication: CONTRACEPTION
     Dosage: 20 MG PER DAY INTRA-UTERI NE
     Route: 015
     Dates: start: 20070710, end: 20100517

REACTIONS (4)
  - HAEMORRHAGE [None]
  - MIGRAINE [None]
  - MOOD SWINGS [None]
  - OVARIAN CYST RUPTURED [None]
